FAERS Safety Report 8687400 (Version 2)
Quarter: 2012Q4

REPORT INFORMATION
  Report Type: 
  Country: FR (occurrence: FR)
  Receive Date: 20120727
  Receipt Date: 20120829
  Transmission Date: 20130627
  Serious: No
  Sender: FDA-Public Use
  Company Number: FR-EISAI INC-E3810-05707-SPO-FR

PATIENT
  Age: 66 Year
  Sex: Female
  Weight: 56 kg

DRUGS (5)
  1. PARIET (RABEPRAZOLE) [Suspect]
     Indication: GASTRIC DISORDER
     Route: 048
     Dates: start: 20120613, end: 20120618
  2. PARIET (RABEPRAZOLE) [Suspect]
     Indication: COUGH
  3. BECLOJET [Concomitant]
     Indication: INFECTION
     Route: 065
  4. AERIUS [Concomitant]
     Route: 065
  5. LEVOTHYROX [Concomitant]
     Indication: HYPOTHYROIDISM
     Route: 048
     Dates: start: 2010

REACTIONS (1)
  - Diplopia [Recovered/Resolved]
